FAERS Safety Report 23975067 (Version 1)
Quarter: 2024Q2

REPORT INFORMATION
  Report Type: Spontaneous
  Country: CN (occurrence: CN)
  Receive Date: 20240614
  Receipt Date: 20240614
  Transmission Date: 20240715
  Serious: Yes (Hospitalization)
  Sender: FDA-Public Use
  Company Number: CN-Merck Healthcare KGaA-2024031050

PATIENT
  Age: 33 Year
  Sex: Female
  Weight: 67 kg

DRUGS (6)
  1. LUVERIS [Suspect]
     Active Substance: LUTROPIN ALFA
     Indication: Ovulation induction
     Route: 058
     Dates: start: 20240520, end: 20240522
  2. FOLLITROPIN BETA [Suspect]
     Active Substance: FOLLITROPIN BETA
     Indication: Ovulation induction
     Route: 058
     Dates: start: 20240515, end: 20240519
  3. GANIRELIX ACETATE [Suspect]
     Active Substance: GANIRELIX ACETATE
     Indication: Ovulation induction
     Route: 058
     Dates: start: 20240520, end: 20240523
  4. DECAPEPTYL (ACETATE) [Suspect]
     Active Substance: TRIPTORELIN ACETATE
     Indication: Ovulation induction
     Route: 058
     Dates: start: 20240523, end: 20240523
  5. MENOTROPINS [Suspect]
     Active Substance: MENOTROPINS
     Indication: Ovulation induction
     Route: 030
     Dates: start: 20240523, end: 20240523
  6. CHORIONIC GONADOTROPHIN [Suspect]
     Active Substance: CHORIOGONADOTROPIN ALFA
     Indication: Ovulation induction
     Route: 030
     Dates: start: 20240523, end: 20240523

REACTIONS (5)
  - Hyperhidrosis [Recovering/Resolving]
  - Ovarian hyperstimulation syndrome [Recovering/Resolving]
  - Abdominal discomfort [Recovering/Resolving]
  - Nausea [Recovering/Resolving]
  - Vomiting [Recovering/Resolving]

NARRATIVE: CASE EVENT DATE: 20240525
